FAERS Safety Report 16532464 (Version 6)
Quarter: 2020Q3

REPORT INFORMATION
  Report Type: Spontaneous
  Country: DE (occurrence: DE)
  Receive Date: 20190705
  Receipt Date: 20191220
  Transmission Date: 20201104
  Serious: Yes (Other)
  Sender: FDA-Public Use
  Company Number: DE-BEH-2019103610

PATIENT
  Age: 1 Year
  Sex: Male
  Weight: 9 kg

DRUGS (7)
  1. HUMAN FACTOR VIII (INN) [Suspect]
     Active Substance: ANTIHEMOPHILIC FACTOR HUMAN
     Dosage: 200 IU/KG BW DAILY
     Route: 065
  2. FACTOR VIIA [Concomitant]
     Active Substance: COAGULATION FACTOR VIIA HUMAN
     Route: 065
     Dates: start: 20180307
  3. EMICIZUMAB. [Suspect]
     Active Substance: EMICIZUMAB
     Indication: HAEMORRHAGE PROPHYLAXIS
  4. EMICIZUMAB. [Suspect]
     Active Substance: EMICIZUMAB
     Indication: IMMUNE TOLERANCE INDUCTION
  5. ELOCTA [Suspect]
     Active Substance: EFMOROCTOCOG ALFA
     Indication: IMMUNE TOLERANCE INDUCTION
     Dosage: 2000 INTERNATIONAL UNIT
     Route: 042
     Dates: start: 20181024
  6. ELOCTA [Suspect]
     Active Substance: EFMOROCTOCOG ALFA
     Indication: IMMUNE TOLERANCE INDUCTION
     Dosage: 1500 INTERNATIONAL UNIT, QD
     Route: 042
     Dates: start: 20180327
  7. EMICIZUMAB. [Suspect]
     Active Substance: EMICIZUMAB
     Indication: FACTOR VIII DEFICIENCY
     Dosage: 0.45 ML OF A VIAL WITH 30MG/ML LOADING DOSE: 3 MG/KG, MAINTANANCE DOSE: 1.5 MG/KG
     Route: 058
     Dates: start: 20180321

REACTIONS (1)
  - Device related thrombosis [Recovered/Resolved]

NARRATIVE: CASE EVENT DATE: 20180813
